FAERS Safety Report 5248652-0 (Version None)
Quarter: 2007Q1

REPORT INFORMATION
  Report Type: 
  Country: None (occurrence: None)
  Receive Date: 20070226
  Receipt Date: 20070226
  Transmission Date: 20070707
  Serious: Yes (Congenital Anomaly)
  Sender: FDA-Public Use
  Company Number: None

PATIENT
  Sex: Female
  Weight: 58.9676 kg

DRUGS (1)
  1. PAXIL [Suspect]
     Dosage: 40 MG ONCE DAILY PO
     Route: 048
     Dates: start: 19980801, end: 20020501

REACTIONS (8)
  - ANXIETY [None]
  - CONDITION AGGRAVATED [None]
  - DEPRESSION [None]
  - DRUG EXPOSURE DURING PREGNANCY [None]
  - PREGNANCY [None]
  - SCAR [None]
  - SELF MUTILATION [None]
  - SUICIDAL IDEATION [None]
